FAERS Safety Report 16315657 (Version 1)
Quarter: 2019Q2

REPORT INFORMATION
  Report Type: Spontaneous
  Country: US (occurrence: US)
  Receive Date: 20190515
  Receipt Date: 20190515
  Transmission Date: 20190711
  Serious: Yes (Hospitalization)
  Sender: FDA-Public Use
  Company Number: US-ALLERGAN-1919943US

PATIENT
  Sex: Female

DRUGS (3)
  1. BOTOX [Suspect]
     Active Substance: ONABOTULINUMTOXINA
     Dosage: ACTUAL: A VERY LOW DOSAGE, SINGLE
     Route: 030
     Dates: start: 201902, end: 201902
  2. BOTOX [Suspect]
     Active Substance: ONABOTULINUMTOXINA
     Indication: MIGRAINE
     Dosage: 155 UNITS, SINGLE
     Route: 030
     Dates: start: 201902, end: 201902
  3. BOTOX [Suspect]
     Active Substance: ONABOTULINUMTOXINA
     Dosage: ACTUAL: A VERY LOW DOSAGE, SINGLE
     Route: 030
     Dates: start: 201902, end: 201902

REACTIONS (3)
  - Fatigue [Not Recovered/Not Resolved]
  - Movement disorder [Unknown]
  - Muscular weakness [Unknown]
